FAERS Safety Report 8239381-X (Version None)
Quarter: 2012Q1

REPORT INFORMATION
  Report Type: 
  Country: None (occurrence: None)
  Receive Date: 20120326
  Receipt Date: 20120312
  Transmission Date: 20120608
  Serious: Yes (Hospitalization, Other)
  Sender: FDA-Public Use
  Company Number: IMP_05770_2012

PATIENT
  Age: 56 Year
  Sex: Male

DRUGS (1)
  1. CABERGOLINE [Suspect]
     Indication: PROLACTINOMA
     Dosage: (DF)

REACTIONS (2)
  - PNEUMOCEPHALUS [None]
  - INTRACRANIAL PRESSURE INCREASED [None]
